FAERS Safety Report 7979953-0 (Version None)
Quarter: 2011Q4

REPORT INFORMATION
  Report Type: 
  Country: None (occurrence: None)
  Receive Date: 20111214
  Receipt Date: 20111213
  Transmission Date: 20120403
  Serious: Yes (Hospitalization)
  Sender: FDA-Public Use
  Company Number: US-ROCHE-1021676

PATIENT
  Age: 49 Year
  Sex: Female

DRUGS (1)
  1. XELODA [Suspect]
     Indication: BREAST CANCER METASTATIC
     Route: 048
     Dates: start: 20110401

REACTIONS (1)
  - HOSPITALISATION [None]
